FAERS Safety Report 22042094 (Version 1)
Quarter: 2023Q1

REPORT INFORMATION
  Report Type: Spontaneous
  Country: US (occurrence: US)
  Receive Date: 20230227
  Receipt Date: 20230227
  Transmission Date: 20230418
  Serious: Yes (Hospitalization)
  Sender: FDA-Public Use
  Company Number: US-BIOMARINAP-US-2023-148580

PATIENT

DRUGS (1)
  1. BRINEURA [Suspect]
     Active Substance: CERLIPONASE ALFA
     Indication: Neuronal ceroid lipofuscinosis
     Dosage: 150 MILLIGRAM, QOW
     Route: 020
     Dates: start: 20220728

REACTIONS (3)
  - Catheter site swelling [Recovering/Resolving]
  - Device leakage [Recovered/Resolved]
  - Device dislocation [Recovering/Resolving]

NARRATIVE: CASE EVENT DATE: 20230127
